FAERS Safety Report 20515287 (Version 1)
Quarter: 2022Q1

REPORT INFORMATION
  Report Type: Spontaneous
  Country: US (occurrence: US)
  Receive Date: 20220224
  Receipt Date: 20220224
  Transmission Date: 20220423
  Serious: No
  Sender: FDA-Public Use
  Company Number: US-GW PHARMA-202202USGW00813

PATIENT
  Sex: Female

DRUGS (3)
  1. EPIDIOLEX [Suspect]
     Active Substance: CANNABIDIOL
     Indication: Lennox-Gastaut syndrome
     Dosage: 1000 MILLIGRAM
     Route: 048
     Dates: start: 202010
  2. AMBIEN [Suspect]
     Active Substance: ZOLPIDEM TARTRATE
     Indication: Product used for unknown indication
     Dosage: UNK (TAKEN FOR 2 DAYS ONLY)
     Route: 065
  3. SEROQUEL [Suspect]
     Active Substance: QUETIAPINE FUMARATE
     Indication: Product used for unknown indication
     Dosage: UNK (TAKEN FOR 2 DAYS ONLY)
     Route: 048

REACTIONS (4)
  - Hallucination [Unknown]
  - Abnormal behaviour [Unknown]
  - Insomnia [Unknown]
  - Aggression [Unknown]
